FAERS Safety Report 9288555 (Version 1)
Quarter: 2013Q2

REPORT INFORMATION
  Report Type: Report from Study
  Country: US (occurrence: US)
  Receive Date: 20130514
  Receipt Date: 20130514
  Transmission Date: 20140414
  Serious: Yes (Hospitalization)
  Sender: FDA-Public Use
  Company Number: PHEH2013US008755

PATIENT
  Age: 59 Year
  Sex: Male

DRUGS (14)
  1. TASIGNA [Suspect]
     Indication: CHRONIC MYELOID LEUKAEMIA
     Dosage: 300 MG, BID
     Route: 048
     Dates: start: 20130308, end: 20130409
  2. PHENERGAN [Concomitant]
     Dosage: 1 DF, Q6H
     Route: 048
     Dates: start: 20130408
  3. ZOFRAN [Concomitant]
     Dosage: 1 DF, Q8H
     Route: 048
     Dates: start: 20130408
  4. LISINOPRIL [Concomitant]
     Dosage: 20 MG, UNK
     Route: 048
  5. LISINOPRIL HYDROCHLORTHIAZID [Concomitant]
     Dosage: 1 DF, UNK
     Route: 048
  6. METOPROLOL TARTRATE [Concomitant]
     Dosage: 50 MG, BID
     Route: 048
  7. FLOMAX [Concomitant]
     Dosage: 0.4 MG, EVERY DAY
     Route: 048
  8. MELOXICAM [Concomitant]
     Dosage: 15 MG, PER DAY
     Route: 048
  9. NEURONTIN [Concomitant]
     Dosage: 800 MG, TID
     Route: 048
  10. VENTOLIN HFA [Concomitant]
     Dosage: 2 PUFFS, AS NEEDED
  11. SYMBICORT [Concomitant]
     Dosage: 2 PUFFS, AS NEEDED
  12. HYDROCODONE/ACETAMINOPHEN [Concomitant]
     Dosage: UNK, TID
     Route: 048
  13. AVODART [Concomitant]
     Dosage: 0.5 MG, PER DAY
     Route: 048
  14. SPRYCEL [Concomitant]
     Dosage: 100 MG, EVERY DAY
     Route: 048

REACTIONS (2)
  - Pancreatitis acute [Recovered/Resolved]
  - Abdominal pain upper [Recovered/Resolved]
